FAERS Safety Report 9437583 (Version 1)
Quarter: 2013Q3

REPORT INFORMATION
  Report Type: Spontaneous
  Country: CO (occurrence: CO)
  Receive Date: 20130802
  Receipt Date: 20130802
  Transmission Date: 20140515
  Serious: Yes (Death, Hospitalization)
  Sender: FDA-Public Use
  Company Number: CO-SHIRE-ALL1-2013-05241

PATIENT
  Age: 9 Year
  Sex: Male
  Weight: 18 kg

DRUGS (1)
  1. ELAPRASE [Suspect]
     Indication: MUCOPOLYSACCHARIDOSIS II
     Dosage: UNK, UNKNOWN
     Route: 041
     Dates: start: 2010

REACTIONS (2)
  - Lung disorder [Fatal]
  - Disease progression [Fatal]
